FAERS Safety Report 5060434-1 (Version None)
Quarter: 2006Q3

REPORT INFORMATION
  Report Type: 
  Country: None (occurrence: None)
  Receive Date: 20060720
  Receipt Date: 20060705
  Transmission Date: 20061208
  Serious: Yes (Life-Threatening, Hospitalization)
  Sender: FDA-Public Use
  Company Number: 2006RL000249

PATIENT
  Age: 63 Year
  Sex: Female
  Weight: 55.5 kg

DRUGS (3)
  1. RYTHMOL [Suspect]
     Indication: DRUG USE FOR UNKNOWN INDICATION
     Dosage: 325 MG; PO
     Route: 048
     Dates: start: 20060629, end: 20060629
  2. RYTHMOL [Suspect]
     Indication: DRUG USE FOR UNKNOWN INDICATION
     Dosage: 600 MG; X1; PO
     Route: 048
     Dates: start: 20060629, end: 20060629
  3. AMIODARONE HCL [Concomitant]

REACTIONS (2)
  - BRADYCARDIA [None]
  - MEDICATION ERROR [None]
